FAERS Safety Report 9701629 (Version 2)
Quarter: 2013Q4

REPORT INFORMATION
  Report Type: Spontaneous
  Country: US (occurrence: US)
  Receive Date: 20131121
  Receipt Date: 20131121
  Transmission Date: 20140711
  Serious: Yes (Hospitalization)
  Sender: FDA-Public Use
  Company Number: US-B.I. PHARMACEUTICALS,INC./RIDGEFIELD-2013-BI-15790BP

PATIENT
  Age: 76 Year
  Sex: Female
  Weight: 120.2 kg

DRUGS (12)
  1. PRADAXA [Suspect]
     Indication: ANTICOAGULANT THERAPY
     Dosage: 300 MG
     Route: 048
     Dates: start: 20121113, end: 20121223
  2. PRADAXA [Suspect]
     Indication: RETINAL ISCHAEMIA
  3. PROMETHAZINE [Concomitant]
     Route: 048
  4. NAPROXEN [Concomitant]
     Dosage: 1000 MG
     Route: 048
  5. AMLODIPINE/BENAZEPRIL [Concomitant]
     Route: 048
  6. CARVEDILOL [Concomitant]
     Dosage: 12.5 MG
     Route: 048
  7. ALLEGRA [Concomitant]
     Dosage: 180 MG
     Route: 048
  8. LISINOPRIL [Concomitant]
     Dosage: 10 MG
     Route: 048
  9. METFORMIN [Concomitant]
     Dosage: 1000 MG
     Route: 048
  10. LASIX [Concomitant]
     Indication: SWELLING
     Route: 048
  11. ATORVASTATIN [Concomitant]
     Dosage: 80 MG
     Route: 048
  12. ASPIRIN [Concomitant]
     Dosage: 81 MG
     Route: 048

REACTIONS (3)
  - Subarachnoid haemorrhage [Unknown]
  - Subdural haematoma [Unknown]
  - Coagulopathy [Unknown]
